FAERS Safety Report 4347533-4 (Version None)
Quarter: 2004Q2

REPORT INFORMATION
  Report Type: 
  Country: None (occurrence: None)
  Receive Date: 20040426
  Receipt Date: 20040426
  Transmission Date: 20050107
  Serious: Yes (Other)
  Sender: FDA-Public Use
  Company Number: None

PATIENT

DRUGS (2)
  1. 0.45% NORMAL SALINE WITH POTASSIUM CHLORIDE 20 MG BAXTER [Suspect]
     Dosage: INTRAVENOUS
     Route: 042
  2. DEXTROSE 5%, SODIUM CHLORIDE 0.45% AND POTASSIUM CHLORIDE 20MEQ [Suspect]
     Dosage: INTRAVENOUS
     Route: 042

REACTIONS (1)
  - MEDICATION ERROR [None]
